FAERS Safety Report 4905725-7 (Version None)
Quarter: 2006Q1

REPORT INFORMATION
  Report Type: 
  Country: None (occurrence: None)
  Receive Date: 20060208
  Receipt Date: 20050726
  Transmission Date: 20060701
  Serious: Yes (Hospitalization, Disabling, Other)
  Sender: FDA-Public Use
  Company Number: US-MERCK-0507USA04208

PATIENT
  Age: 63 Year
  Sex: Male
  Weight: 124 kg

DRUGS (4)
  1. VIOXX [Suspect]
     Indication: ARTHRITIS
     Route: 048
     Dates: start: 20000101, end: 20040101
  2. VIOXX [Suspect]
     Route: 048
     Dates: start: 20000101, end: 20040101
  3. VIOXX [Suspect]
     Indication: ANKYLOSING SPONDYLITIS
     Route: 048
     Dates: start: 20000101, end: 20040101
  4. VIOXX [Suspect]
     Route: 048
     Dates: start: 20000101, end: 20040101

REACTIONS (25)
  - ABDOMINAL DISTENSION [None]
  - ABDOMINAL PAIN [None]
  - ACUTE MYOCARDIAL INFARCTION [None]
  - ANGINA PECTORIS [None]
  - ANKYLOSING SPONDYLITIS [None]
  - CORONARY ARTERY DISEASE [None]
  - CORONARY ARTERY OCCLUSION [None]
  - CORONARY ARTERY STENOSIS [None]
  - CROHN'S DISEASE [None]
  - DIARRHOEA [None]
  - DISEASE RECURRENCE [None]
  - DYSAESTHESIA [None]
  - EMOTIONAL DISORDER [None]
  - HYPERTENSION [None]
  - ILEITIS [None]
  - LUNG DISORDER [None]
  - MYOCARDIAL INFARCTION [None]
  - NAUSEA [None]
  - PARAESTHESIA [None]
  - SINUSITIS [None]
  - SLEEP DISORDER [None]
  - SMALL INTESTINAL OBSTRUCTION [None]
  - SPINAL DISORDER [None]
  - VENTRICULAR DYSFUNCTION [None]
  - VOMITING [None]
